FAERS Safety Report 20368288 (Version 1)
Quarter: 2022Q1

REPORT INFORMATION
  Report Type: Spontaneous
  Country: GT (occurrence: GT)
  Receive Date: 20220124
  Receipt Date: 20220124
  Transmission Date: 20220423
  Serious: Yes (Other)
  Sender: FDA-Public Use
  Company Number: GT-SA-SAC20220119000582

PATIENT
  Sex: Female

DRUGS (1)
  1. LANTUS SOLOSTAR [Suspect]
     Active Substance: INSULIN GLARGINE
     Indication: Product used for unknown indication
     Dosage: UNK
     Route: 058
     Dates: start: 2002

REACTIONS (2)
  - Gait disturbance [Unknown]
  - Spinal disorder [Unknown]

NARRATIVE: CASE EVENT DATE: 20211101
